FAERS Safety Report 9634119 (Version 1)
Quarter: 2013Q4

REPORT INFORMATION
  Report Type: Spontaneous
  Country: RU (occurrence: RU)
  Receive Date: 20131021
  Receipt Date: 20131021
  Transmission Date: 20140711
  Serious: Yes (Other)
  Sender: FDA-Public Use
  Company Number: RU-ASTRAZENECA-2013SE28019

PATIENT
  Age: 59 Year
  Sex: Female

DRUGS (2)
  1. ARIMIDEX [Suspect]
     Route: 048
     Dates: start: 201208
  2. ARIMIDEX [Suspect]
     Route: 048

REACTIONS (5)
  - Laryngeal oedema [Not Recovered/Not Resolved]
  - Respiratory disorder [Recovered/Resolved]
  - Hyperaemia [Not Recovered/Not Resolved]
  - Dysphagia [Not Recovered/Not Resolved]
  - Skin discolouration [Not Recovered/Not Resolved]
